FAERS Safety Report 24593616 (Version 1)
Quarter: 2024Q4

REPORT INFORMATION
  Report Type: Report from Study
  Country: US (occurrence: US)
  Receive Date: 20241108
  Receipt Date: 20241108
  Transmission Date: 20250115
  Serious: Yes (Other)
  Sender: ALEXION PHARMACEUTICALS
  Company Number: US-AstraZeneca-CH-00739503A

PATIENT

DRUGS (4)
  1. TRUQAP [Suspect]
     Active Substance: CAPIVASERTIB
     Dosage: TAKE 2 TABLETS BY MOUTH TWICE DAILY FOR 4 CONSECUTIVE DAYS, FOLLOWED BY 3 DAYS OFF. REPEAT WEEKLY WI
  2. TRUQAP [Suspect]
     Active Substance: CAPIVASERTIB
     Dosage: TAKE 2 TABLETS BY MOUTH TWICE DAILY FOR 4 CONSECUTIVE DAYS, FOLLOWED BY 3 DAYS OFF. REPEAT WEEKLY WI
  3. TRUQAP [Suspect]
     Active Substance: CAPIVASERTIB
     Dosage: TAKE 2 TABLETS BY MOUTH TWICE DAILY FOR 4 CONSECUTIVE DAYS, FOLLOWED BY 3 DAYS OFF. REPEAT WEEKLY WI
  4. TRUQAP [Suspect]
     Active Substance: CAPIVASERTIB
     Dosage: TAKE 2 TABLETS BY MOUTH TWICE DAILY FOR 4 CONSECUTIVE DAYS, FOLLOWED BY 3 DAYS OFF. REPEAT WEEKLY WI

REACTIONS (2)
  - Neoplasm malignant [Unknown]
  - Fatigue [Unknown]
